FAERS Safety Report 8520461-6 (Version None)
Quarter: 2012Q3

REPORT INFORMATION
  Report Type: 
  Country: None (occurrence: None)
  Receive Date: 20120709
  Receipt Date: 20120625
  Transmission Date: 20120928
  Serious: Yes (Other)
  Sender: FDA-Public Use
  Company Number: 2011MA002619

PATIENT
  Sex: Male

DRUGS (2)
  1. METOCLOPRAMIDE [Suspect]
     Indication: PRODUCT USED FOR UNKNOWN INDICATION
     Dosage: 5 MG/5ML;UNK;UNK
     Dates: start: 20080625, end: 20081101
  2. RANITIDINE [Concomitant]

REACTIONS (8)
  - EXTRAPYRAMIDAL DISORDER [None]
  - ECONOMIC PROBLEM [None]
  - EMOTIONAL DISORDER [None]
  - AKATHISIA [None]
  - TREMOR [None]
  - TARDIVE DYSKINESIA [None]
  - DYSTONIA [None]
  - MOVEMENT DISORDER [None]
